FAERS Safety Report 5787707-9 (Version None)
Quarter: 2008Q2

REPORT INFORMATION
  Report Type: 
  Country: None (occurrence: None)
  Receive Date: 20080625
  Receipt Date: 20071018
  Transmission Date: 20081010
  Serious: No
  Sender: FDA-Public Use
  Company Number: US-ASTRAZENECA-2007UW24283

PATIENT
  Sex: Female

DRUGS (4)
  1. PULMICORT FLEXHALER [Suspect]
     Indication: ASTHMA
     Route: 055
     Dates: start: 20071001
  2. ALTACE [Concomitant]
  3. NORVASC [Concomitant]
  4. PLAVIX [Concomitant]

REACTIONS (2)
  - DYSPNOEA [None]
  - NERVOUSNESS [None]
